FAERS Safety Report 8264628-3 (Version None)
Quarter: 2012Q2

REPORT INFORMATION
  Report Type: 
  Country: None (occurrence: None)
  Receive Date: 20120406
  Receipt Date: 20120330
  Transmission Date: 20120825
  Serious: Yes (Hospitalization, Other)
  Sender: FDA-Public Use
  Company Number: GB-ABBOTT-12P-167-0920246-00

PATIENT
  Sex: Male
  Weight: 94 kg

DRUGS (25)
  1. DIPROBASE [Concomitant]
     Indication: PRODUCT USED FOR UNKNOWN INDICATION
  2. CITALOPRAM HYDROBROMIDE [Concomitant]
     Indication: PRODUCT USED FOR UNKNOWN INDICATION
     Dosage: MANE
     Route: 048
  3. ALENDRONIC ACID [Concomitant]
     Indication: PRODUCT USED FOR UNKNOWN INDICATION
     Route: 048
  4. HUMIRA [Suspect]
     Indication: RHEUMATOID ARTHRITIS
     Route: 058
     Dates: start: 20051121
  5. FERROUS SULFATE TAB [Concomitant]
     Indication: PRODUCT USED FOR UNKNOWN INDICATION
     Route: 048
  6. TRIMOVATE [Concomitant]
     Indication: PRODUCT USED FOR UNKNOWN INDICATION
  7. ACETAMINOPHEN [Concomitant]
     Indication: PRODUCT USED FOR UNKNOWN INDICATION
     Dosage: 1 GRAM FOUR TIMES A DAY AS NEEDED
     Route: 048
  8. DERMOL SOL [Concomitant]
     Indication: PRODUCT USED FOR UNKNOWN INDICATION
     Dosage: PRN MANE
  9. EPADERM [Concomitant]
     Indication: PRODUCT USED FOR UNKNOWN INDICATION
     Dosage: MANE
  10. FOLIC ACID [Concomitant]
     Indication: PRODUCT USED FOR UNKNOWN INDICATION
     Dosage: MANE
     Route: 048
  11. STEROIDS [Concomitant]
     Indication: PRODUCT USED FOR UNKNOWN INDICATION
  12. DIHYDROCODEINE BITARTRATE INJ [Concomitant]
  13. FLAMAZINE [Concomitant]
     Indication: PRODUCT USED FOR UNKNOWN INDICATION
     Dosage: DAILY AT NOCTE
     Route: 061
  14. ASCORBIC ACID [Concomitant]
     Indication: PRODUCT USED FOR UNKNOWN INDICATION
     Dosage: MANE
     Route: 048
  15. PREDNISOLONE [Concomitant]
     Dosage: MANE
  16. OMEPRAZOLE [Concomitant]
     Indication: PRODUCT USED FOR UNKNOWN INDICATION
     Dosage: MANE
     Route: 048
  17. LEFLUNOMIDE [Concomitant]
     Indication: PRODUCT USED FOR UNKNOWN INDICATION
  18. PREDNISOLONE [Concomitant]
     Indication: PRODUCT USED FOR UNKNOWN INDICATION
  19. SANATOGEN GOLD [Concomitant]
     Indication: PRODUCT USED FOR UNKNOWN INDICATION
     Dosage: MANE
     Route: 048
  20. SALMETEROL [Concomitant]
     Indication: PRODUCT USED FOR UNKNOWN INDICATION
     Dosage: 2 PUFF TWICE A DAY
     Route: 048
  21. DIHYDROCODEINE BITARTRATE INJ [Concomitant]
     Indication: PRODUCT USED FOR UNKNOWN INDICATION
     Dosage: 30 MG FOUR TIMES DAILY AS NEEDED
     Route: 048
  22. ALBUTEROL [Concomitant]
     Indication: PRODUCT USED FOR UNKNOWN INDICATION
     Dosage: 2 PUFF FOUR TIMES A DAY AS NEEDED
     Route: 048
  23. BETNOVATE [Concomitant]
     Indication: PRODUCT USED FOR UNKNOWN INDICATION
     Dosage: MANE
  24. ZINC SULPHATE [Concomitant]
     Indication: PRODUCT USED FOR UNKNOWN INDICATION
     Route: 048
  25. SPIRIVA [Concomitant]
     Indication: PRODUCT USED FOR UNKNOWN INDICATION
     Dosage: 1 PUFF (18 MCG MANE)
     Route: 048

REACTIONS (20)
  - VOMITING [None]
  - MYELODYSPLASTIC SYNDROME [None]
  - MOBILITY DECREASED [None]
  - SEPSIS [None]
  - ARTHRITIS [None]
  - HEAD INJURY [None]
  - ARTHRALGIA [None]
  - HYPOTENSION [None]
  - LETHARGY [None]
  - CLOSTRIDIUM DIFFICILE COLITIS [None]
  - CELLULITIS [None]
  - INFECTED SKIN ULCER [None]
  - DYSPNOEA [None]
  - RENAL FAILURE ACUTE [None]
  - FALL [None]
  - BACK PAIN [None]
  - DIARRHOEA [None]
  - NORMOCHROMIC NORMOCYTIC ANAEMIA [None]
  - DEHYDRATION [None]
  - CHRONIC OBSTRUCTIVE PULMONARY DISEASE [None]
